FAERS Safety Report 21552697 (Version 2)
Quarter: 2023Q2

REPORT INFORMATION
  Report Type: Report from Study
  Country: US (occurrence: US)
  Receive Date: 20221104
  Receipt Date: 20230611
  Transmission Date: 20230721
  Serious: Yes (Other)
  Sender: FDA-Public Use
  Company Number: US-ARGENX-2022-ARGX-US002290

PATIENT
  Sex: Male
  Weight: 33.651 kg

DRUGS (1)
  1. VYVGART [Suspect]
     Active Substance: EFGARTIGIMOD ALFA-FCAB
     Indication: Myasthenia gravis
     Dosage: 10 MG/KG
     Route: 042

REACTIONS (7)
  - Fall [Unknown]
  - Rib fracture [Unknown]
  - Incentive spirometry [Unknown]
  - Balance disorder [Unknown]
  - Muscular weakness [Unknown]
  - Muscle strain [Unknown]
  - Musculoskeletal discomfort [Unknown]
